FAERS Safety Report 24161948 (Version 1)
Quarter: 2024Q3

REPORT INFORMATION
  Report Type: Spontaneous
  Country: CN (occurrence: CN)
  Receive Date: 20240801
  Receipt Date: 20240801
  Transmission Date: 20241016
  Serious: Yes (Other)
  Sender: Chengdu Suncadia Medicine
  Company Number: CN-Chengdu Suncadia Medicine Co., Ltd.-2159869

PATIENT
  Weight: 1.94 kg

DRUGS (3)
  1. TACROLIMUS [Suspect]
     Active Substance: TACROLIMUS
     Indication: Product used for unknown indication
  2. MIZORIBINE [Suspect]
     Active Substance: MIZORIBINE
  3. METHYLPREDNISOLONE [Suspect]
     Active Substance: METHYLPREDNISOLONE

REACTIONS (3)
  - Foetal growth restriction [Recovered/Resolved]
  - Foetal exposure during pregnancy [Recovered/Resolved]
  - Premature baby [Recovered/Resolved]
